FAERS Safety Report 9439659 (Version 1)
Quarter: 2013Q3

REPORT INFORMATION
  Report Type: Spontaneous
  Country: US (occurrence: US)
  Receive Date: 20130805
  Receipt Date: 20130805
  Transmission Date: 20140515
  Serious: No
  Sender: FDA-Public Use
  Company Number: US-PFIZER INC-2013224418

PATIENT
  Age: 48 Year
  Sex: Male
  Weight: 99.77 kg

DRUGS (3)
  1. CELEBREX [Suspect]
     Indication: PAIN
     Dosage: 200 MG, 1X/DAY
     Route: 048
  2. SERTRALINE [Concomitant]
     Dosage: UNK
  3. THYROXINE [Concomitant]
     Dosage: UNK

REACTIONS (2)
  - Tooth disorder [Unknown]
  - Gingivitis [Unknown]
